FAERS Safety Report 17581877 (Version 1)
Quarter: 2020Q1

REPORT INFORMATION
  Report Type: Spontaneous
  Country: US (occurrence: US)
  Receive Date: 20200325
  Receipt Date: 20200325
  Transmission Date: 20200409
  Serious: Yes (Other)
  Sender: FDA-Public Use
  Company Number: None

PATIENT
  Sex: Female
  Weight: 72 kg

DRUGS (14)
  1. VIT B (COMPLEX) [Concomitant]
  2. VITAMIN D [Concomitant]
     Active Substance: VITAMIN D NOS
  3. GRAPE SEED EXTRACT [Concomitant]
     Active Substance: DIETARY SUPPLEMENT\GRAPE SEED EXTRACT
  4. HYDROXYCHLOROQUINE 200 MG [Suspect]
     Active Substance: HYDROXYCHLOROQUINE
     Indication: SYSTEMIC LUPUS ERYTHEMATOSUS
     Dosage: ?          QUANTITY:2 TABLET(S);?
     Route: 048
  5. ZINC. [Concomitant]
     Active Substance: ZINC
  6. CALCIUM [Concomitant]
     Active Substance: CALCIUM
  7. ST JOHNS WORT [Concomitant]
     Active Substance: ST. JOHN^S WORT
  8. STAINGING NETTLE [Concomitant]
  9. HYDROXYCHLOROQUINE 200 MG [Suspect]
     Active Substance: HYDROXYCHLOROQUINE
     Indication: RHEUMATOID ARTHRITIS
     Dosage: ?          QUANTITY:2 TABLET(S);?
     Route: 048
  10. VENTOLIN [Concomitant]
     Active Substance: ALBUTEROL SULFATE
  11. PREM-PRO 0.3MG/1.5MG [Concomitant]
  12. VITAMIN C [Concomitant]
     Active Substance: ASCORBIC ACID
  13. MAGNESIUM [Concomitant]
     Active Substance: MAGNESIUM
  14. COD LIVER OIL [Concomitant]
     Active Substance: COD LIVER OIL

REACTIONS (12)
  - Fatigue [None]
  - Nausea [None]
  - Photosensitivity reaction [None]
  - Abnormal weight gain [None]
  - Syncope [None]
  - Dyspnoea [None]
  - Tremor [None]
  - Chest pain [None]
  - Joint swelling [None]
  - Alopecia [None]
  - Abdominal pain upper [None]
  - Dizziness [None]
